FAERS Safety Report 25976215 (Version 1)
Quarter: 2025Q4

REPORT INFORMATION
  Report Type: Spontaneous
  Country: CN (occurrence: CN)
  Receive Date: 20251029
  Receipt Date: 20251029
  Transmission Date: 20260118
  Serious: Yes (Disabling)
  Sender: BEIGENE
  Company Number: CN-BEIGENE-BGN-2025-018382

PATIENT
  Age: 63 Year
  Weight: 59.4 kg

DRUGS (8)
  1. TISLELIZUMAB [Suspect]
     Active Substance: TISLELIZUMAB
     Indication: Hepatic cancer
     Dosage: 200 MILLIGRAM, APPROXIMATELY EVERY 40 DAYS
  2. TISLELIZUMAB [Suspect]
     Active Substance: TISLELIZUMAB
     Indication: Metastases to lymph nodes
     Dosage: 200 MILLIGRAM, APPROXIMATELY EVERY 40 DAYS
     Route: 041
  3. TISLELIZUMAB [Suspect]
     Active Substance: TISLELIZUMAB
     Dosage: 200 MILLIGRAM, APPROXIMATELY EVERY 40 DAYS
     Route: 041
  4. TISLELIZUMAB [Suspect]
     Active Substance: TISLELIZUMAB
     Dosage: 200 MILLIGRAM, APPROXIMATELY EVERY 40 DAYS
  5. LENVATINIB MESYLATE [Suspect]
     Active Substance: LENVATINIB MESYLATE
     Indication: Hepatic cancer
     Dosage: UNK
  6. LENVATINIB MESYLATE [Suspect]
     Active Substance: LENVATINIB MESYLATE
     Indication: Metastases to lymph nodes
     Dosage: UNK
     Route: 048
  7. LENVATINIB MESYLATE [Suspect]
     Active Substance: LENVATINIB MESYLATE
     Dosage: 8 MILLIGRAM, QOD
  8. LENVATINIB MESYLATE [Suspect]
     Active Substance: LENVATINIB MESYLATE
     Dosage: 8 MILLIGRAM, QOD
     Route: 048

REACTIONS (2)
  - Hypertension [Recovering/Resolving]
  - Off label use [Unknown]
